FAERS Safety Report 24887458 (Version 1)
Quarter: 2025Q1

REPORT INFORMATION
  Report Type: Spontaneous
  Country: SA (occurrence: SA)
  Receive Date: 20250127
  Receipt Date: 20250127
  Transmission Date: 20250408
  Serious: Yes (Other)
  Sender: ROCHE
  Company Number: SA-002147023-NVSC2025SA011145

PATIENT
  Age: 52 Year
  Sex: Female

DRUGS (1)
  1. XOLAIR [Suspect]
     Active Substance: OMALIZUMAB
     Indication: Chronic spontaneous urticaria
     Route: 030

REACTIONS (4)
  - Hypertension [Unknown]
  - Tremor [Unknown]
  - Hypersensitivity [Unknown]
  - Muscle spasms [Unknown]
